FAERS Safety Report 7415514-X (Version None)
Quarter: 2011Q2

REPORT INFORMATION
  Report Type: 
  Country: None (occurrence: None)
  Receive Date: 20110414
  Receipt Date: 20110404
  Transmission Date: 20111010
  Serious: Yes (Hospitalization)
  Sender: FDA-Public Use
  Company Number: US-ACTELION-A-NJ2011-47159

PATIENT

DRUGS (4)
  1. ACTEMRA [Concomitant]
  2. REVATIO [Concomitant]
  3. PREDNISONE [Concomitant]
  4. TRACLEER [Suspect]
     Indication: PULMONARY ARTERIAL HYPERTENSION
     Dosage: UNK
     Route: 048
     Dates: start: 20110121

REACTIONS (1)
  - AUTOIMMUNE DISORDER [None]
